FAERS Safety Report 9791762 (Version 1)
Quarter: 2014Q1

REPORT INFORMATION
  Report Type: Spontaneous
  Country: IL (occurrence: IL)
  Receive Date: 20140102
  Receipt Date: 20140102
  Transmission Date: 20141002
  Serious: Yes (Hospitalization)
  Sender: FDA-Public Use
  Company Number: IL-ROCHE-1325770

PATIENT
  Age: 80 Year
  Sex: Female

DRUGS (1)
  1. BEVACIZUMAB [Suspect]
     Indication: MALIGNANT PERITONEAL NEOPLASM
     Route: 065
     Dates: end: 201212

REACTIONS (5)
  - Nicotinic acid deficiency [Recovered/Resolved]
  - Thrombocytopenia [Recovered/Resolved]
  - Leukopenia [Recovered/Resolved]
  - Hypothermia [Recovered/Resolved]
  - Blood pressure increased [Unknown]
